FAERS Safety Report 8772480 (Version 1)
Quarter: 2012Q4

REPORT INFORMATION
  Report Type: Report from Study
  Country: IT (occurrence: IT)
  Receive Date: 20120905
  Receipt Date: 20120905
  Transmission Date: 20130627
  Serious: Yes (Hospitalization, Other)
  Sender: FDA-Public Use
  Company Number: IT-ELI_LILLY_AND_COMPANY-IT201208008671

PATIENT
  Age: 67 Year
  Sex: Male
  Weight: 76 kg

DRUGS (5)
  1. GEMCITABINE HYDROCHLORIDE [Suspect]
     Indication: NON-SMALL CELL LUNG CANCER
     Dosage: 1200 mg/m2 (2280mg)
     Route: 042
     Dates: start: 20110813
  2. CISPLATIN [Suspect]
     Indication: NON-SMALL CELL LUNG CANCER
     Dosage: 75 mg/m2 (140mg)
     Route: 042
     Dates: start: 20110813
  3. SOLDESAM [Concomitant]
     Indication: PREMEDICATION
     Dosage: UNK
     Dates: start: 20110813, end: 20110813
  4. ALOXI [Concomitant]
     Dosage: UNK
     Dates: start: 20110813, end: 20110813
  5. ZANTAC [Concomitant]
     Indication: PREMEDICATION
     Dosage: UNK
     Dates: start: 20110813, end: 20110813

REACTIONS (2)
  - Pulmonary embolism [Recovered/Resolved]
  - Respiratory failure [Unknown]
